FAERS Safety Report 20694314 (Version 1)
Quarter: 2022Q2

REPORT INFORMATION
  Report Type: Spontaneous
  Country: US (occurrence: US)
  Receive Date: 20220411
  Receipt Date: 20220411
  Transmission Date: 20220720
  Serious: Yes (Hospitalization)
  Sender: FDA-Public Use
  Company Number: US-EUSA PHARMA (UK) LIMITED-2022US000150

PATIENT

DRUGS (1)
  1. SYLVANT [Suspect]
     Active Substance: SILTUXIMAB
     Indication: Product used for unknown indication
     Dosage: 11 MG/KG, /NR INF EVERY 3 WEEKS
     Route: 042

REACTIONS (1)
  - Infection [Recovering/Resolving]
